FAERS Safety Report 9631635 (Version 1)
Quarter: 2013Q4

REPORT INFORMATION
  Report Type: Spontaneous
  Country: GB (occurrence: GB)
  Receive Date: 20131018
  Receipt Date: 20131018
  Transmission Date: 20140711
  Serious: Yes (Other)
  Sender: FDA-Public Use
  Company Number: GB-ASTELLAS-2013EU008860

PATIENT
  Sex: 0

DRUGS (1)
  1. FK506 [Suspect]
     Indication: CROHN^S DISEASE
     Dosage: UNK
     Route: 061

REACTIONS (4)
  - Off label use [Unknown]
  - Intentional drug misuse [Unknown]
  - Toxicity to various agents [Unknown]
  - Varicella [Unknown]
